FAERS Safety Report 7290311-7 (Version None)
Quarter: 2011Q1

REPORT INFORMATION
  Report Type: 
  Country: None (occurrence: None)
  Receive Date: 20110214
  Receipt Date: 20110209
  Transmission Date: 20110831
  Serious: Yes (Hospitalization)
  Sender: FDA-Public Use
  Company Number: US-B.I. PHARMACEUTICALS,INC./RIDGEFIELD-2010-BP-13778BP

PATIENT
  Sex: Female

DRUGS (7)
  1. SPIRIVA [Suspect]
     Dosage: 18 MCG
     Route: 055
     Dates: start: 20101201
  2. TRIAM [Concomitant]
  3. SPIRIVA [Suspect]
     Indication: CHRONIC OBSTRUCTIVE PULMONARY DISEASE
     Dosage: 18 MCG
     Route: 055
     Dates: start: 20070101, end: 20101101
  4. RAMIPRIL [Concomitant]
  5. OMEPRAZOLE [Concomitant]
  6. METFORMIN HYDROCHLORIDE [Concomitant]
  7. OXYGEN [Concomitant]
     Indication: SLEEP APNOEA SYNDROME

REACTIONS (5)
  - ABDOMINAL HERNIA [None]
  - WEIGHT DECREASED [None]
  - CANDIDIASIS [None]
  - DYSGEUSIA [None]
  - DYSURIA [None]
